FAERS Safety Report 5685029-8 (Version None)
Quarter: 2008Q1

REPORT INFORMATION
  Report Type: 
  Country: None (occurrence: None)
  Receive Date: 20080328
  Receipt Date: 19971202
  Transmission Date: 20080703
  Serious: Yes (Death)
  Sender: FDA-Public Use
  Company Number: FR-ROCHE-91206

PATIENT
  Age: 63 Year
  Sex: Male

DRUGS (3)
  1. ROCEPHIN [Suspect]
     Indication: DRUG USE FOR UNKNOWN INDICATION
     Route: 042
     Dates: start: 19971201, end: 19971201
  2. FUROSEMIDE [Concomitant]
  3. ANTICOAGULANT NOS [Concomitant]

REACTIONS (2)
  - BLOOD CREATININE INCREASED [None]
  - DEATH [None]
